FAERS Safety Report 5955247-X (Version None)
Quarter: 2008Q4

REPORT INFORMATION
  Report Type: 
  Country: None (occurrence: None)
  Receive Date: 20081117
  Receipt Date: 20081107
  Transmission Date: 20090506
  Serious: No
  Sender: FDA-Public Use
  Company Number: US-B.I. PHARMACEUTICALS,INC./RIDGEFIELD-2008-BP-16990BP

PATIENT
  Sex: Female

DRUGS (3)
  1. CLONIDINE HCL [Suspect]
     Indication: HYPERTENSION
     Route: 048
  2. LIDODERM [Concomitant]
     Indication: ARTHRITIS
  3. INDOCIN [Concomitant]
     Indication: ARTHRITIS

REACTIONS (1)
  - DRY MOUTH [None]
